FAERS Safety Report 5117874-1 (Version None)
Quarter: 2006Q3

REPORT INFORMATION
  Report Type: 
  Country: None (occurrence: None)
  Receive Date: 20060929
  Receipt Date: 20060926
  Transmission Date: 20061208
  Serious: Yes (Other)
  Sender: FDA-Public Use
  Company Number: GB-MERCK-0609GBR00124

PATIENT
  Age: 74 Year
  Sex: Female
  Weight: 69 kg

DRUGS (10)
  1. ZOCOR [Suspect]
     Indication: BLOOD CHOLESTEROL INCREASED
     Route: 048
     Dates: start: 20050511, end: 20050824
  2. ZOCOR [Suspect]
     Indication: HYPERTENSION
     Route: 048
     Dates: start: 20050511, end: 20050824
  3. CALCIUM CARBONATE AND CHOLECALCIFEROL [Concomitant]
     Route: 065
  4. FOLIC ACID [Concomitant]
     Route: 065
  5. FUROSEMIDE [Concomitant]
     Route: 048
     Dates: start: 20040101
  6. INDOMETHACIN [Concomitant]
     Indication: RHEUMATOID ARTHRITIS
     Route: 048
     Dates: start: 20010101
  7. LOSARTAN POTASSIUM [Concomitant]
     Indication: HYPERTENSION
     Route: 048
     Dates: start: 20041201
  8. METHOTREXATE [Concomitant]
     Indication: RHEUMATOID ARTHRITIS
     Route: 048
     Dates: start: 20011201
  9. PREDNISOLONE [Concomitant]
     Indication: RHEUMATOID ARTHRITIS
     Route: 048
     Dates: start: 20040101
  10. TEMAZEPAM [Concomitant]
     Route: 048

REACTIONS (1)
  - CYSTITIS PSEUDOMONAL [None]
